FAERS Safety Report 5056023-5 (Version None)
Quarter: 2006Q3

REPORT INFORMATION
  Report Type: 
  Country: None (occurrence: None)
  Receive Date: 20060717
  Receipt Date: 20060705
  Transmission Date: 20061208
  Serious: Yes (Other)
  Sender: FDA-Public Use
  Company Number: HQWYE298711MAY06

PATIENT
  Age: 72 Year
  Sex: Female
  Weight: 68.1 kg

DRUGS (2)
  1. PREMARIN [Suspect]
  2. ESTRACE [Suspect]

REACTIONS (1)
  - BREAST CANCER RECURRENT [None]
